FAERS Safety Report 6545560-X (Version None)
Quarter: 2010Q1

REPORT INFORMATION
  Report Type: 
  Country: None (occurrence: None)
  Receive Date: 20100119
  Receipt Date: 20100108
  Transmission Date: 20100710
  Serious: No
  Sender: FDA-Public Use
  Company Number: 2010000100

PATIENT
  Sex: Male

DRUGS (1)
  1. FENTORA [Suspect]
     Dosage: ORAL
     Route: 048

REACTIONS (2)
  - ACCIDENTAL EXPOSURE [None]
  - INCORRECT ROUTE OF DRUG ADMINISTRATION [None]
